FAERS Safety Report 25495029 (Version 2)
Quarter: 2025Q3

REPORT INFORMATION
  Report Type: Spontaneous
  Country: US (occurrence: US)
  Receive Date: 20250630
  Receipt Date: 20250707
  Transmission Date: 20251021
  Serious: Yes (Life-Threatening, Hospitalization, Other)
  Sender: PFIZER
  Company Number: US-PFIZER INC-PV202500075765

PATIENT
  Age: 15 Year
  Sex: Male

DRUGS (3)
  1. HYDROCORTISONE SODIUM SUCCINATE [Suspect]
     Active Substance: HYDROCORTISONE SODIUM SUCCINATE
     Indication: Autoimmune haemolytic anaemia
     Dosage: 300 MG, 4X/DAY (EVERY 6 HOURS) FOR TWO DAYS
     Route: 042
  2. HYDROCORTISONE SODIUM SUCCINATE [Suspect]
     Active Substance: HYDROCORTISONE SODIUM SUCCINATE
     Dosage: 300 MG, 4X/DAY (EVERY 6 HOURS) FOR TWO DAYS
     Route: 042
  3. PREDNISONE [Suspect]
     Active Substance: PREDNISONE
     Indication: Autoimmune haemolytic anaemia
     Dosage: 80 MG, 3X/DAY
     Route: 048

REACTIONS (3)
  - Evans syndrome [Unknown]
  - Condition aggravated [Unknown]
  - Tuberculosis [Unknown]
